FAERS Safety Report 24026650 (Version 1)
Quarter: 2024Q2

REPORT INFORMATION
  Report Type: Spontaneous
  Country: CA (occurrence: CA)
  Receive Date: 20240628
  Receipt Date: 20240628
  Transmission Date: 20240716
  Serious: No
  Sender: FDA-Public Use
  Company Number: CA-ROCHE-3538155

PATIENT
  Sex: Female

DRUGS (2)
  1. ALECTINIB [Suspect]
     Active Substance: ALECTINIB
     Indication: Lung adenocarcinoma
     Route: 048
  2. ALECTINIB [Suspect]
     Active Substance: ALECTINIB
     Route: 048

REACTIONS (3)
  - Maternal exposure during pregnancy [Unknown]
  - Hyperbilirubinaemia [Unknown]
  - Premature rupture of membranes [Unknown]
